FAERS Safety Report 10094285 (Version 1)
Quarter: 2014Q2

REPORT INFORMATION
  Report Type: Spontaneous
  Country: US (occurrence: None)
  Receive Date: 20140421
  Receipt Date: 20140421
  Transmission Date: 20141212
  Serious: No
  Sender: FDA-Public Use
  Company Number: None

PATIENT
  Age: 18 Year
  Sex: Female
  Weight: 73.48 kg

DRUGS (2)
  1. CYMBALTA [Suspect]
     Indication: MAJOR DEPRESSION
     Dosage: 1 PILL, ONCE DAILY, TAKEN BY MOUTH
     Route: 048
     Dates: start: 20140407, end: 20140420
  2. CYMBALTA [Suspect]
     Indication: NEURALGIA
     Dosage: 1 PILL, ONCE DAILY, TAKEN BY MOUTH
     Route: 048
     Dates: start: 20140407, end: 20140420

REACTIONS (7)
  - Crying [None]
  - Tremor [None]
  - Antisocial behaviour [None]
  - Abnormal behaviour [None]
  - Tremor [None]
  - Hypoaesthesia [None]
  - Hypoaesthesia [None]
